FAERS Safety Report 17675135 (Version 1)
Quarter: 2020Q2

REPORT INFORMATION
  Report Type: Spontaneous
  Country: US (occurrence: US)
  Receive Date: 20200415
  Receipt Date: 20200415
  Transmission Date: 20200714
  Serious: Yes (Hospitalization)
  Sender: FDA-Public Use
  Company Number: None

PATIENT
  Age: 39 Year
  Sex: Female

DRUGS (1)
  1. NAPROXEN. [Suspect]
     Active Substance: NAPROXEN
     Dosage: ?          OTHER FREQUENCY:4 TO 5 TIMES DAILY;?

REACTIONS (2)
  - Acute kidney injury [None]
  - Asthenia [None]

NARRATIVE: CASE EVENT DATE: 20200415
